FAERS Safety Report 12534576 (Version 1)
Quarter: 2016Q3

REPORT INFORMATION
  Report Type: Spontaneous
  Country: DE (occurrence: DE)
  Receive Date: 20160706
  Receipt Date: 20160706
  Transmission Date: 20161109
  Serious: Yes (Other)
  Sender: FDA-Public Use
  Company Number: DE-GILEAD-2016-0216507

PATIENT
  Age: 34 Year
  Sex: Male

DRUGS (3)
  1. RANOLAZINE [Suspect]
     Active Substance: RANOLAZINE
     Indication: VENTRICULAR TACHYCARDIA
     Route: 065
  2. AMIODARONE [Suspect]
     Active Substance: AMIODARONE
     Indication: VENTRICULAR TACHYCARDIA
     Route: 065
  3. SOTALOL. [Suspect]
     Active Substance: SOTALOL
     Indication: VENTRICULAR TACHYCARDIA
     Route: 065

REACTIONS (1)
  - Drug ineffective for unapproved indication [Recovered/Resolved]
